FAERS Safety Report 25153984 (Version 3)
Quarter: 2025Q2

REPORT INFORMATION
  Report Type: Report from Study
  Country: CA (occurrence: CA)
  Receive Date: 20250403
  Receipt Date: 20250514
  Transmission Date: 20250717
  Serious: Yes (Other)
  Sender: SAMSUNG BIOEPIS
  Company Number: CA-SAMSUNG BIOEPIS-SB-2025-11655

PATIENT
  Age: 74 Year
  Sex: Female

DRUGS (4)
  1. HADLIMA [Suspect]
     Active Substance: ADALIMUMAB-BWWD
     Indication: Psoriatic arthropathy
     Dates: start: 20240903, end: 20250307
  2. HADLIMA [Suspect]
     Active Substance: ADALIMUMAB-BWWD
     Dates: start: 20250425
  3. METHOTREXATE [Suspect]
     Active Substance: METHOTREXATE
     Indication: Product used for unknown indication
  4. METHOTREXATE [Suspect]
     Active Substance: METHOTREXATE

REACTIONS (12)
  - Visual field defect [Recovered/Resolved]
  - Eyelid ptosis [Recovered/Resolved]
  - Swelling of eyelid [Unknown]
  - Eyelid pain [Unknown]
  - COVID-19 [Unknown]
  - Viral infection [Unknown]
  - Nausea [Unknown]
  - Thirst [Unknown]
  - Fluid retention [Not Recovered/Not Resolved]
  - Arthritis [Not Recovered/Not Resolved]
  - Irritability [Not Recovered/Not Resolved]
  - Pain in extremity [Recovering/Resolving]

NARRATIVE: CASE EVENT DATE: 20250425
